FAERS Safety Report 4289455-3 (Version None)
Quarter: 2004Q1

REPORT INFORMATION
  Report Type: 
  Country: None (occurrence: None)
  Receive Date: 20040203
  Receipt Date: 20030813
  Transmission Date: 20041129
  Serious: Yes (Other)
  Sender: FDA-Public Use
  Company Number: 200322380BWH

PATIENT
  Age: 53 Year
  Sex: Female

DRUGS (4)
  1. AVELOX [Suspect]
     Indication: COUGH
     Dosage: 400 MG, ONCE, ORAL
     Route: 048
     Dates: start: 20030806
  2. AVELOX [Suspect]
     Indication: RESPIRATORY TRACT CONGESTION
     Dosage: 400 MG, ONCE, ORAL
     Route: 048
     Dates: start: 20030806
  3. KLONOPIN [Concomitant]
  4. VIVELLE-DOT [Concomitant]

REACTIONS (10)
  - DIARRHOEA [None]
  - DRY THROAT [None]
  - ERYTHEMA [None]
  - HYPERSENSITIVITY [None]
  - NAUSEA [None]
  - PRURITUS [None]
  - SWELLING [None]
  - SWELLING FACE [None]
  - TREMOR [None]
  - URTICARIA [None]
